FAERS Safety Report 5741978-3 (Version None)
Quarter: 2008Q2

REPORT INFORMATION
  Report Type: 
  Country: None (occurrence: None)
  Receive Date: 20080519
  Receipt Date: 20080512
  Transmission Date: 20081010
  Serious: Yes (Other)
  Sender: FDA-Public Use
  Company Number: US-MERCK-0805USA00653

PATIENT
  Age: 70 Year
  Sex: Male

DRUGS (12)
  1. FOSAMAX PLUS D [Suspect]
     Indication: OSTEOPOROSIS
     Route: 048
     Dates: start: 20050101
  2. FINASTERIDE [Concomitant]
     Route: 065
  3. PYRIDOXINE [Concomitant]
     Route: 065
  4. CYANOCOBALAMIN [Concomitant]
     Route: 065
  5. CALCIUM CITRATE [Concomitant]
     Route: 065
  6. PANTOTHENIC ACID [Concomitant]
     Route: 065
  7. OMEGA-3 MARINE TRIGLYCERIDES [Concomitant]
     Route: 065
  8. TEA [Concomitant]
     Route: 065
  9. NIACIN [Concomitant]
     Route: 065
  10. ASPIRIN [Concomitant]
     Route: 065
  11. FLUOROURACIL [Concomitant]
     Route: 065
  12. LEUCOVORIN CALCIUM [Concomitant]
     Route: 065

REACTIONS (3)
  - OSTEONECROSIS [None]
  - PARKINSON'S DISEASE [None]
  - STRESS FRACTURE [None]
